FAERS Safety Report 4642361-4 (Version None)
Quarter: 2005Q2

REPORT INFORMATION
  Report Type: 
  Country: None (occurrence: None)
  Receive Date: 20050420
  Receipt Date: 20050407
  Transmission Date: 20051028
  Serious: Yes (Hospitalization, Other)
  Sender: FDA-Public Use
  Company Number: 2005EU000708

PATIENT
  Age: 51 Year
  Sex: Female

DRUGS (3)
  1. PROGRAF [Suspect]
     Indication: MYASTHENIA GRAVIS
     Dosage: 6.00 MG, /D
  2. PREDNISONE [Concomitant]
  3. PYRIDOSTIGMINE (PYRIDOSTIGMINE) [Concomitant]

REACTIONS (7)
  - ATELECTASIS [None]
  - HEADACHE [None]
  - MALAISE [None]
  - MENINGITIS LISTERIA [None]
  - MUSCULOSKELETAL STIFFNESS [None]
  - PYREXIA [None]
  - RESPIRATORY FAILURE [None]
